FAERS Safety Report 18683947 (Version 1)
Quarter: 2020Q4

REPORT INFORMATION
  Report Type: Spontaneous
  Country: VU (occurrence: VU)
  Receive Date: 20201230
  Receipt Date: 20201230
  Transmission Date: 20210114
  Serious: Yes (Other)
  Sender: FDA-Public Use
  Company Number: PHBS1991VU02538

PATIENT
  Age: 45 Year
  Sex: Male

DRUGS (3)
  1. SERVIDAPSONE [Suspect]
     Active Substance: DAPSONE
     Indication: LEPROSY
     Dosage: 100 MG
     Route: 048
     Dates: start: 19901219
  2. RIFAMPICIN [Suspect]
     Active Substance: RIFAMPIN
     Indication: LEPROSY
     Dosage: UNK
     Route: 065
  3. CLOFAZIMINE [Suspect]
     Active Substance: CLOFAZIMINE
     Indication: LEPROSY
     Dosage: UNK
     Route: 065

REACTIONS (5)
  - Pyrexia [Unknown]
  - Rash [Unknown]
  - Drug reaction with eosinophilia and systemic symptoms [Unknown]
  - Skin ulcer [Unknown]
  - Jaundice [Unknown]

NARRATIVE: CASE EVENT DATE: 1990
